FAERS Safety Report 18337033 (Version 6)
Quarter: 2021Q1

REPORT INFORMATION
  Report Type: Spontaneous
  Country: DE (occurrence: DE)
  Receive Date: 20201002
  Receipt Date: 20210226
  Transmission Date: 20210419
  Serious: Yes (Death, Hospitalization, Other)
  Sender: FDA-Public Use
  Company Number: DE-ALEXION-A202014272

PATIENT
  Age: 5 Month
  Sex: Female

DRUGS (1)
  1. KANUMA [Suspect]
     Active Substance: SEBELIPASE ALFA
     Indication: PRODUCT USED FOR UNKNOWN INDICATION
     Dosage: ASCENDING DOSES 1MG/KG, 2MG/KG, 3MG/KG, 4 MG/KG, 5 MG/KG WEEKLY, THEN 5 MG/KG TWICE WEEKLY
     Route: 065
     Dates: start: 20200829, end: 20201210

REACTIONS (3)
  - Hepatic failure [Unknown]
  - Renal failure [Unknown]
  - Respiratory failure [Fatal]

NARRATIVE: CASE EVENT DATE: 20201212
